FAERS Safety Report 8792557 (Version 2)
Quarter: 2012Q4

REPORT INFORMATION
  Report Type: 
  Country: US (occurrence: US)
  Receive Date: 20120918
  Receipt Date: 20121012
  Transmission Date: 20130627
  Serious: Yes (Death, Hospitalization)
  Sender: FDA-Public Use
  Company Number: US-ROCHE-1129318

PATIENT
  Age: 47 Year
  Sex: Female

DRUGS (3)
  1. AVASTIN [Suspect]
     Indication: BREAST CANCER FEMALE
     Route: 042
     Dates: start: 20060801, end: 20061003
  2. AVASTIN [Suspect]
     Route: 065
     Dates: start: 20060912
  3. AVASTIN [Suspect]
     Route: 065
     Dates: start: 20061003

REACTIONS (7)
  - Death [Fatal]
  - Metastases to central nervous system [Unknown]
  - Hydrocephalus [Unknown]
  - Abdominal pain [Unknown]
  - Constipation [Unknown]
  - Nausea [Unknown]
  - Vomiting [Unknown]
